FAERS Safety Report 23267954 (Version 1)
Quarter: 2023Q4

REPORT INFORMATION
  Report Type: Spontaneous
  Country: US (occurrence: None)
  Receive Date: 20231205
  Receipt Date: 20231205
  Transmission Date: 20240109
  Serious: Yes (Disabling)
  Sender: FDA-Public Use
  Company Number: None

PATIENT
  Age: 69 Year
  Sex: Male
  Weight: 77.11 kg

DRUGS (5)
  1. INVEGA [Suspect]
     Active Substance: PALIPERIDONE
     Indication: Bipolar disorder
     Dosage: FREQUENCY : MONTHLY;?
     Route: 058
  2. QUETIAPINE [Suspect]
     Active Substance: QUETIAPINE
  3. JULUCA [Concomitant]
     Active Substance: DOLUTEGRAVIR SODIUM\RILPIVIRINE HYDROCHLORIDE
  4. TESTOSTERONE [Concomitant]
     Active Substance: TESTOSTERONE
  5. VITAMIN D [Concomitant]
     Active Substance: VITAMIN D NOS

REACTIONS (5)
  - Syncope [None]
  - Fall [None]
  - Confusional state [None]
  - Blood glucose increased [None]
  - Eye movement disorder [None]

NARRATIVE: CASE EVENT DATE: 20231101
